FAERS Safety Report 23605508 (Version 1)
Quarter: 2024Q1

REPORT INFORMATION
  Report Type: Spontaneous
  Country: US (occurrence: US)
  Receive Date: 20240307
  Receipt Date: 20240307
  Transmission Date: 20240410
  Serious: No
  Sender: FDA-Public Use
  Company Number: US-REGENERON PHARMACEUTICALS, INC.-2023-152330

PATIENT
  Sex: Female

DRUGS (4)
  1. EYLEA HD [Suspect]
     Active Substance: AFLIBERCEPT
     Indication: Product used for unknown indication
     Dosage: FIRST LOADING DOSE, 8 MG, Q4W (EVERY 4 WEEKS); FORMULATION: HD VIAL
     Dates: start: 2023, end: 2023
  2. EYLEA HD [Suspect]
     Active Substance: AFLIBERCEPT
     Dosage: SECOND LOADING DOSE, 8 MG, Q4W (EVERY 4 WEEKS); FORMULATION: HD VIAL
     Dates: start: 2023, end: 2023
  3. EYLEA HD [Suspect]
     Active Substance: AFLIBERCEPT
     Dosage: THIRD LOADING DOSE, 8 MG, Q4W (EVERY 4 WEEKS); FORMULATION: HD VIAL
     Dates: start: 2023, end: 2023
  4. EYLEA HD [Suspect]
     Active Substance: AFLIBERCEPT
     Dosage: FOURTH DOSE, 8 MG EVERY 7 WEEKS; FORMULATION: HD VIAL
     Dates: start: 20231213

REACTIONS (2)
  - Visual impairment [Unknown]
  - Eye oedema [Unknown]

NARRATIVE: CASE EVENT DATE: 20230101
